FAERS Safety Report 18719853 (Version 2)
Quarter: 2021Q1

REPORT INFORMATION
  Report Type: Report from Study
  Country: ES (occurrence: ES)
  Receive Date: 20210108
  Receipt Date: 20210115
  Transmission Date: 20210419
  Serious: Yes (Other)
  Sender: FDA-Public Use
  Company Number: ES-ALNYLAM PHARMACEUTICALS, INC.-ALN-2020-002493

PATIENT

DRUGS (6)
  1. TRAMADOL. [Concomitant]
     Active Substance: TRAMADOL
     Indication: ABDOMINAL PAIN
     Dosage: 50 MILLIGRAM, TID, EVERY 8H WHEN PAIN
     Route: 048
     Dates: start: 20191220
  2. CHLORPROMAZINE. [Concomitant]
     Active Substance: CHLORPROMAZINE
     Indication: INSOMNIA
     Dosage: 4 DROP, QD, AT NIGHT IF INSOMNIA
     Route: 048
     Dates: start: 20191220
  3. GIVLAARI [Suspect]
     Active Substance: GIVOSIRAN SODIUM
     Dosage: 137 MILLIGRAM, MONTHLY
     Route: 058
     Dates: start: 20200724
  4. LORAZEPAM. [Concomitant]
     Active Substance: LORAZEPAM
     Indication: ANXIETY
     Dosage: 1 MILLIGRAM, QD, IF ANXIETY
     Route: 048
     Dates: start: 20191220
  5. GIVLAARI [Suspect]
     Active Substance: GIVOSIRAN SODIUM
     Indication: PORPHYRIA ACUTE
     Dosage: 142 MILLIGRAM, MONTHLY
     Route: 058
     Dates: start: 20201229
  6. ONDANSETRON [Concomitant]
     Active Substance: ONDANSETRON
     Indication: NAUSEA
     Dosage: 4 MILLIGRAM, TID, EVERY 8H WHEN NAUSEA
     Route: 048
     Dates: start: 20191220

REACTIONS (1)
  - Hyperhomocysteinaemia [Not Recovered/Not Resolved]

NARRATIVE: CASE EVENT DATE: 20200928
